FAERS Safety Report 4268264-5 (Version None)
Quarter: 2004Q1

REPORT INFORMATION
  Report Type: 
  Country: None (occurrence: None)
  Receive Date: 20040109
  Receipt Date: 20040109
  Transmission Date: 20041129
  Serious: Yes (Other)
  Sender: FDA-Public Use
  Company Number: None

PATIENT
  Age: 69 Year
  Sex: Female
  Weight: 78.4723 kg

DRUGS (5)
  1. PERIOMED .63% STANNOUS FLUORIDE RINSE [Suspect]
     Dosage: ONCE A DAY, AT NIGHT
     Dates: start: 20031018, end: 20031208
  2. BENICOR [Concomitant]
  3. ZILACTIN [Concomitant]
  4. LEVOBUNOLOL HCL [Concomitant]
  5. FOSAMAX [Concomitant]

REACTIONS (6)
  - GINGIVAL DISCOLOURATION [None]
  - HYPERSENSITIVITY [None]
  - ORAL PAIN [None]
  - TONGUE DISCOLOURATION [None]
  - TOOTHACHE [None]
  - VIRAL INFECTION [None]
